FAERS Safety Report 20863161 (Version 1)
Quarter: 2022Q2

REPORT INFORMATION
  Report Type: Spontaneous
  Country: US (occurrence: US)
  Receive Date: 20220523
  Receipt Date: 20220523
  Transmission Date: 20220721
  Serious: Yes (Hospitalization)
  Sender: FDA-Public Use
  Company Number: US-BIOMARINAP-US-2022-142826

PATIENT
  Age: 14 Year
  Sex: Male
  Weight: 14.83 kg

DRUGS (2)
  1. NAGLAZYME [Suspect]
     Active Substance: GALSULFASE
     Indication: Mucopolysaccharidosis VI
     Dosage: UNK UNK, QW
     Route: 042
  2. LATANOPROST [Concomitant]
     Active Substance: LATANOPROST
     Indication: Eye disorder
     Dosage: UNK, QD

REACTIONS (4)
  - Cystitis [Unknown]
  - Nasopharyngitis [Recovered/Resolved]
  - Pyrexia [Recovered/Resolved]
  - Pain [Recovered/Resolved]

NARRATIVE: CASE EVENT DATE: 20220501
